FAERS Safety Report 18013139 (Version 7)
Quarter: 2020Q3

REPORT INFORMATION
  Report Type: Spontaneous
  Country: US (occurrence: US)
  Receive Date: 20200713
  Receipt Date: 20200724
  Transmission Date: 20201103
  Serious: No
  Sender: FDA-Public Use
  Company Number: US-PFIZER INC-2020263029

PATIENT
  Sex: Female
  Weight: 61.23 kg

DRUGS (1)
  1. PREMPRO [Suspect]
     Active Substance: ESTROGENS, CONJUGATED\MEDROXYPROGESTERONE ACETATE
     Indication: ATROPHIC VULVOVAGINITIS
     Dosage: UNK, ONCE A DAY (TAKING IT IN THE MORNING WITH BREAKFAST)

REACTIONS (1)
  - Therapeutic response unexpected [Unknown]
